FAERS Safety Report 5946161-4 (Version None)
Quarter: 2008Q4

REPORT INFORMATION
  Report Type: 
  Country: None (occurrence: None)
  Receive Date: 20081110
  Receipt Date: 20081103
  Transmission Date: 20090506
  Serious: Yes (Life-Threatening, Other)
  Sender: FDA-Public Use
  Company Number: RO-BAYER-200829751GPV

PATIENT
  Age: 60 Year
  Sex: Female
  Weight: 58 kg

DRUGS (10)
  1. ADALAT [Suspect]
     Indication: RAYNAUD'S PHENOMENON
     Dosage: TOTAL DAILY DOSE: 20 MG  UNIT DOSE: 20 MG
     Route: 048
     Dates: start: 20080901, end: 20081027
  2. DILTIAZEM [Concomitant]
     Indication: DRUG USE FOR UNKNOWN INDICATION
     Dosage: AS USED: 60-60 MG  UNIT DOSE: 60 MG
     Route: 048
     Dates: start: 20080901
  3. CORDARONE [Concomitant]
     Indication: DRUG USE FOR UNKNOWN INDICATION
     Route: 048
     Dates: start: 20080901
  4. EDNYT [Concomitant]
     Indication: RENAL DISORDER
     Dosage: TOTAL DAILY DOSE: 2.5 MG  UNIT DOSE: 2.5 MG
     Route: 048
     Dates: start: 20080901
  5. SALAGEN [Concomitant]
     Indication: DRY MOUTH
     Route: 065
  6. GLUCOBAY [Concomitant]
     Indication: DIABETES MELLITUS
     Dosage: AS USED: 100-100-100 MG  UNIT DOSE: 100 MG
     Route: 048
     Dates: start: 20070101
  7. SERETIDE ACCUHALER [Concomitant]
     Indication: DRUG USE FOR UNKNOWN INDICATION
     Route: 055
     Dates: start: 20081029
  8. FOSAMAX [Concomitant]
     Indication: OSTEOPOROSIS
     Route: 048
     Dates: start: 20060101
  9. OROCAL D(3) [Concomitant]
     Indication: OSTEOPOROSIS
     Dosage: AS USED: 500-500 MG  UNIT DOSE: 500 MG
     Route: 048
     Dates: start: 20080901
  10. MOPROL [Concomitant]
     Indication: DYSPHAGIA
     Dosage: AS USED: 20-20 MG  UNIT DOSE: 20 MG
     Route: 048
     Dates: start: 20080901

REACTIONS (3)
  - CARDIAC FIBRILLATION [None]
  - TACHYCARDIA [None]
  - VENTRICULAR EXTRASYSTOLES [None]
